FAERS Safety Report 11437793 (Version 2)
Quarter: 2015Q4

REPORT INFORMATION
  Report Type: Report from Study
  Country: KR (occurrence: KR)
  Receive Date: 20150831
  Receipt Date: 20151012
  Transmission Date: 20160304
  Serious: No
  Sender: FDA-Public Use
  Company Number: PHHY2015KR098739

PATIENT
  Age: 63 Year
  Sex: Male

DRUGS (7)
  1. AVELOX//LEVOFLOXACIN [Concomitant]
     Active Substance: LEVOFLOXACIN
     Indication: PRODUCTIVE COUGH
     Dosage: 400 MG, UNK
     Route: 048
     Dates: start: 20131126, end: 20131210
  2. SUPRAX [Concomitant]
     Active Substance: CEFIXIME
     Indication: PNEUMONIA
     Dosage: 200 MG, UNK
     Route: 048
     Dates: start: 20131011, end: 20131017
  3. ASIMA [Concomitant]
     Indication: PNEUMONIA
     Dosage: 800 MG, UNK
     Route: 048
     Dates: start: 20131011, end: 20131017
  4. CRAVIT [Concomitant]
     Active Substance: LEVOFLOXACIN
     Indication: PNEUMONIA
     Dosage: 500 MG, UNK
     Route: 048
     Dates: start: 20131003, end: 20131017
  5. SERETIDE [Concomitant]
     Active Substance: FLUTICASONE FUROATE\SALMETEROL XINAFOATE
     Indication: ASTHMA
     Dosage: 1DF (1 BOTTLE)
     Route: 065
     Dates: start: 20131008, end: 20131126
  6. SINGULAIR [Concomitant]
     Active Substance: MONTELUKAST SODIUM
     Indication: ASTHMA
     Dosage: 10 MG, UNK
     Route: 048
     Dates: start: 20131008, end: 20131223
  7. TASIGNA [Suspect]
     Active Substance: NILOTINIB
     Indication: CHRONIC MYELOID LEUKAEMIA
     Dosage: 600 MG, QD
     Route: 048
     Dates: start: 20131009

REACTIONS (2)
  - Pruritus [Recovered/Resolved]
  - Myalgia [Recovered/Resolved]

NARRATIVE: CASE EVENT DATE: 20131126
